FAERS Safety Report 6190944-5 (Version None)
Quarter: 2009Q2

REPORT INFORMATION
  Report Type: 
  Country: None (occurrence: None)
  Receive Date: 20090514
  Receipt Date: 20090507
  Transmission Date: 20091009
  Serious: Yes (Other)
  Sender: FDA-Public Use
  Company Number: IT-MERCK-0905ITA00011

PATIENT
  Age: 44 Day
  Sex: Male
  Weight: 1 kg

DRUGS (5)
  1. CANCIDAS [Suspect]
     Indication: SYSTEMIC CANDIDA
     Route: 051
  2. CANCIDAS [Suspect]
     Route: 051
  3. CANCIDAS [Suspect]
     Route: 051
  4. AMPHOTERICIN B AND CHOLESTEROL AND DISTEAROYLPHOSPHATIDYLGLYCEROL AND [Concomitant]
     Route: 051
  5. AMPHOTERICIN B AND CHOLESTEROL AND DISTEAROYLPHOSPHATIDYLGLYCEROL AND [Concomitant]
     Route: 051

REACTIONS (1)
  - ACUTE HEPATIC FAILURE [None]
